FAERS Safety Report 12689360 (Version 5)
Quarter: 2019Q2

REPORT INFORMATION
  Report Type: Report from Study
  Country: US (occurrence: US)
  Receive Date: 20160826
  Receipt Date: 20190422
  Transmission Date: 20190711
  Serious: Yes (Other)
  Sender: FDA-Public Use
  Company Number: US-BIOGEN-2016BI00205021

PATIENT
  Age: 32 Year
  Sex: Female
  Weight: 56 kg

DRUGS (12)
  1. DOXYCYCLINE HYCLATE. [Concomitant]
     Active Substance: DOXYCYCLINE HYCLATE
     Indication: ACNE
     Route: 048
     Dates: start: 20150101
  2. TYLENOL [Concomitant]
     Active Substance: ACETAMINOPHEN
     Indication: HEADACHE
     Route: 048
     Dates: start: 20080408
  3. FISH OIL [Concomitant]
     Active Substance: FISH OIL
     Indication: HYPERCHOLESTEROLAEMIA
     Route: 048
     Dates: start: 20131223
  4. MOTRIN [Concomitant]
     Active Substance: IBUPROFEN
     Indication: HEADACHE
     Route: 048
     Dates: start: 20080407
  5. VITAMIN D NOS [Concomitant]
     Active Substance: VITAMIN D NOS
     Indication: VITAMIN D DEFICIENCY
     Route: 048
  6. TRETINOIN. [Concomitant]
     Active Substance: TRETINOIN
     Indication: ACNE
     Route: 061
     Dates: start: 20140320
  7. GINGER ROOT [Concomitant]
     Active Substance: GINGER
     Indication: NAUSEA
     Route: 048
     Dates: start: 20120407
  8. CALCIUM [Concomitant]
     Active Substance: CALCIUM
     Indication: VITAMIN D DEFICIENCY
     Route: 048
     Dates: start: 20101206
  9. ERADIKATE [Concomitant]
     Indication: ACNE
     Route: 061
     Dates: start: 201306
  10. BG00012 [Suspect]
     Active Substance: DIMETHYL FUMARATE
     Indication: RELAPSING-REMITTING MULTIPLE SCLEROSIS
     Route: 048
     Dates: start: 20100104, end: 20140817
  11. BG00012 [Suspect]
     Active Substance: DIMETHYL FUMARATE
     Route: 048
     Dates: start: 20140818, end: 20160301
  12. CYANOCOBALAMIN. [Concomitant]
     Active Substance: CYANOCOBALAMIN
     Indication: VITAMIN B12 DEFICIENCY
     Route: 030
     Dates: start: 201307

REACTIONS (2)
  - Abortion spontaneous [Recovered/Resolved]
  - Maternal exposure during pregnancy [Recovered/Resolved]

NARRATIVE: CASE EVENT DATE: 20160129
